FAERS Safety Report 4730152-5 (Version None)
Quarter: 2005Q3

REPORT INFORMATION
  Report Type: 
  Country: None (occurrence: None)
  Receive Date: 20050728
  Receipt Date: 20050719
  Transmission Date: 20060218
  Serious: Yes (Life-Threatening, Hospitalization)
  Sender: FDA-Public Use
  Company Number: 214256

PATIENT
  Age: 65 Year
  Sex: Male
  Weight: 74.5 kg

DRUGS (8)
  1. RITUXAN [Suspect]
     Indication: LYMPHOMA
     Dosage: 375 MG/M2, 1/WEEK, INTRAVENOUS; SEE IMAGE
     Route: 042
     Dates: start: 20050218, end: 20050218
  2. RITUXAN [Suspect]
     Indication: LYMPHOMA
     Dosage: 375 MG/M2, 1/WEEK, INTRAVENOUS; SEE IMAGE
     Route: 042
     Dates: end: 20050225
  3. RITUXAN [Suspect]
     Indication: LYMPHOMA
     Dosage: 375 MG/M2, 1/WEEK, INTRAVENOUS; SEE IMAGE
     Route: 042
     Dates: end: 20050304
  4. CYCLOPHOSPHAMIDE [Concomitant]
  5. VINCRISTINE [Concomitant]
  6. DOXORUBICIN HCL [Concomitant]
  7. PREDNISONE [Concomitant]
  8. PROPAFENONE (PROPAFENONE HYDROCHLORIDE) [Concomitant]

REACTIONS (1)
  - PULMONARY EMBOLISM [None]
